FAERS Safety Report 15651987 (Version 11)
Quarter: 2022Q2

REPORT INFORMATION
  Report Type: Report from Study
  Country: US (occurrence: None)
  Receive Date: 20181123
  Receipt Date: 20220401
  Transmission Date: 20220720
  Serious: Yes (Death, Life-Threatening, Hospitalization, Other)
  Sender: FDA-Public Use
  Company Number: US-ROCHE-2217429

PATIENT
  Age: 66 Year
  Sex: Female
  Weight: 68.3 kg

DRUGS (8)
  1. ATEZOLIZUMAB [Suspect]
     Active Substance: ATEZOLIZUMAB
     Indication: Diffuse large B-cell lymphoma
     Dosage: CYCLE 2+ (28 DAY CYCLE)?MOST RECENT DOSE PRIOR TO AE, 12OCT2018 (CYCLE 2 DAY 1)
     Route: 041
     Dates: start: 20181012
  2. RITUXIMAB [Suspect]
     Active Substance: RITUXIMAB
     Indication: Diffuse large B-cell lymphoma
     Dosage: CYCLE 1 (14 DAYS), RECEIVED ON DAY 1?CYCLE 2+ (28 DAY CYCLE), RECEIVED ON DAY 1 AND 15?MOST RECENT D
     Route: 041
     Dates: start: 20180919
  3. GEMCITABINE [Suspect]
     Active Substance: GEMCITABINE
     Indication: Diffuse large B-cell lymphoma
     Dosage: CYCLE 1 (14 DAYS), RECEIVED ON DAY 1?CYCLE 2+ (28 DAY CYCLE), RECEIVED ON DAY 1 AND 15?MOST RECENT D
     Route: 042
     Dates: start: 20180919
  4. OXALIPLATIN [Suspect]
     Active Substance: OXALIPLATIN
     Indication: Diffuse large B-cell lymphoma
     Dosage: CYCLE 1 (14 DAYS), RECEIVED ON DAY 1?CYCLE 2+ (28 DAY CYCLE), RECEIVED ON DAY 1 AND 15?MOST RECENT D
     Route: 042
     Dates: start: 20180919
  5. DIPHENHYDRAMINE [Concomitant]
     Active Substance: DIPHENHYDRAMINE
  6. ENOXAPARIN [Concomitant]
     Active Substance: ENOXAPARIN
     Indication: Thrombosis prophylaxis
  7. PANTOPRAZOLE [Concomitant]
     Active Substance: PANTOPRAZOLE
     Indication: Prophylaxis
  8. LEVOFLOXACIN [Concomitant]
     Active Substance: LEVOFLOXACIN

REACTIONS (17)
  - Cardiac arrest [Fatal]
  - Bronchopulmonary aspergillosis [Fatal]
  - Stevens-Johnson syndrome [Not Recovered/Not Resolved]
  - Pneumonia [Unknown]
  - Cardiac arrest [Not Recovered/Not Resolved]
  - Multiple organ dysfunction syndrome [Not Recovered/Not Resolved]
  - Respiratory failure [Not Recovered/Not Resolved]
  - Acute kidney injury [Not Recovered/Not Resolved]
  - Anaemia [Fatal]
  - Diarrhoea [Fatal]
  - Back pain [Unknown]
  - Pneumonia [Fatal]
  - Hypokalaemia [Fatal]
  - Hypertension [Fatal]
  - Neutrophil count decreased [Unknown]
  - Lymphocyte count decreased [Unknown]
  - Obesity [Unknown]

NARRATIVE: CASE EVENT DATE: 20181028
